FAERS Safety Report 16357293 (Version 3)
Quarter: 2019Q2

REPORT INFORMATION
  Report Type: Spontaneous
  Country: GR (occurrence: GR)
  Receive Date: 20190527
  Receipt Date: 20190617
  Transmission Date: 20190711
  Serious: Yes (Death, Life-Threatening, Hospitalization)
  Sender: FDA-Public Use
  Company Number: GR-ROCHE-2320066

PATIENT
  Age: 66 Year
  Sex: Female

DRUGS (2)
  1. CAPECITABINE. [Suspect]
     Active Substance: CAPECITABINE
     Indication: COLON CANCER
     Dosage: UNK
     Route: 048
  2. OXALIPLATIN. [Suspect]
     Active Substance: OXALIPLATIN
     Indication: COLON CANCER
     Route: 065

REACTIONS (14)
  - Epilepsy [Unknown]
  - Septic shock [Fatal]
  - Febrile neutropenia [Recovered/Resolved]
  - Toxicity to various agents [Unknown]
  - Respiratory tract infection [Fatal]
  - Mucosal inflammation [Unknown]
  - Cardiogenic shock [Fatal]
  - Thrombocytopenia [Recovered/Resolved]
  - Respiratory failure [Fatal]
  - Atrial fibrillation [Fatal]
  - Multiple organ dysfunction syndrome [Fatal]
  - Cardiac failure [Fatal]
  - Pancytopenia [Fatal]
  - Diarrhoea [Unknown]
